FAERS Safety Report 5443999-7 (Version None)
Quarter: 2007Q3

REPORT INFORMATION
  Report Type: 
  Country: None (occurrence: None)
  Receive Date: 20070731
  Receipt Date: 20070620
  Transmission Date: 20080115
  Serious: No
  Sender: FDA-Public Use
  Company Number: US200706004972

PATIENT
  Age: 60 Year
  Sex: Female

DRUGS (3)
  1. BYETTA [Suspect]
     Indication: TYPE 2 DIABETES MELLITUS
     Dosage: 5 UG, 2/D, SUBCUTANEOUS
     Route: 058
     Dates: start: 20070420
  2. GLUCOPHAGE [Concomitant]
  3. MICRONASE [Concomitant]

REACTIONS (4)
  - INJECTION SITE IRRITATION [None]
  - RASH [None]
  - SKIN BURNING SENSATION [None]
  - URTICARIA [None]
